FAERS Safety Report 10062398 (Version 1)
Quarter: 2014Q2

REPORT INFORMATION
  Report Type: Spontaneous
  Country: US (occurrence: US)
  Receive Date: 20140407
  Receipt Date: 20140407
  Transmission Date: 20141212
  Serious: No
  Sender: FDA-Public Use
  Company Number: US-PFIZER INC-2014093220

PATIENT
  Age: 49 Year
  Sex: Female
  Weight: 65.76 kg

DRUGS (2)
  1. PREMARIN [Suspect]
     Indication: OESTROGEN REPLACEMENT THERAPY
     Dosage: 0.625 MG, DAILY
     Route: 048
     Dates: start: 201209
  2. DIGOXIN [Concomitant]
     Indication: CARDIAC DISORDER
     Dosage: UNK

REACTIONS (5)
  - Drug ineffective [Unknown]
  - Hot flush [Unknown]
  - Mood swings [Unknown]
  - Night sweats [Unknown]
  - Crying [Unknown]
